APPROVED DRUG PRODUCT: ACYCLOVIR
Active Ingredient: ACYCLOVIR
Strength: 200MG
Dosage Form/Route: CAPSULE;ORAL
Application: A206261 | Product #001 | TE Code: AB
Applicant: CARLSBAD TECHNOLOGY INC
Approved: Aug 16, 2017 | RLD: No | RS: No | Type: RX